FAERS Safety Report 13512005 (Version 1)
Quarter: 2017Q2

REPORT INFORMATION
  Report Type: Report from Study
  Country: US (occurrence: US)
  Receive Date: 20170504
  Receipt Date: 20170504
  Transmission Date: 20170830
  Serious: Yes (Hospitalization, Other)
  Sender: FDA-Public Use
  Company Number: US-GILEAD-2017-0270962

PATIENT
  Age: 63 Year
  Sex: Female

DRUGS (16)
  1. DIGOXIN. [Concomitant]
     Active Substance: DIGOXIN
  2. Q10 [Concomitant]
  3. EDECRIN                            /00020501/ [Concomitant]
  4. MVI                                /01825701/ [Concomitant]
     Active Substance: VITAMINS
  5. AMBRISENTAN [Suspect]
     Active Substance: AMBRISENTAN
     Dosage: 5 MG, QD
     Route: 048
     Dates: start: 201112, end: 201608
  6. AMBRISENTAN [Suspect]
     Active Substance: AMBRISENTAN
     Dosage: 5 MG, QD
     Route: 048
     Dates: start: 20170501
  7. WARFARIN [Concomitant]
     Active Substance: WARFARIN
  8. ULTRAM [Concomitant]
     Active Substance: TRAMADOL HYDROCHLORIDE
  9. NORTRIPTYLINE [Concomitant]
     Active Substance: NORTRIPTYLINE
  10. AMBRISENTAN [Suspect]
     Active Substance: AMBRISENTAN
     Indication: PULMONARY ARTERIAL HYPERTENSION
     Dosage: 5 MG, QD
     Route: 048
     Dates: start: 20170406
  11. VELETRI [Concomitant]
     Active Substance: EPOPROSTENOL
  12. VITAMIN B COMPLEX [Concomitant]
     Active Substance: CYANOCOBALAMIN\DEXPANTHENOL\NIACINAMIDE\PYRIDOXINE HYDROCHLORIDE\RIBOFLAVIN 5^-PHOSPHATE SODIUM\THIAMINE HYDROCHLORIDE\VITAMIN B COMPLEX
  13. VITAMIN D3 [Concomitant]
     Active Substance: CHOLECALCIFEROL
  14. FLONASE                            /00908302/ [Concomitant]
     Active Substance: MOMETASONE FUROATE
  15. SILDENAFIL. [Concomitant]
     Active Substance: SILDENAFIL
  16. OMEGA-3 FISH OIL [Concomitant]
     Active Substance: FISH OIL\OMEGA-3 FATTY ACIDS

REACTIONS (6)
  - Pneumonia [Unknown]
  - Pyrexia [Unknown]
  - Hepatic enzyme increased [Unknown]
  - Cough [Unknown]
  - Dyspnoea [Unknown]
  - Influenza [Unknown]

NARRATIVE: CASE EVENT DATE: 20170416
